FAERS Safety Report 22072188 (Version 1)
Quarter: 2023Q1

REPORT INFORMATION
  Report Type: Spontaneous
  Country: US (occurrence: US)
  Receive Date: 20230308
  Receipt Date: 20230308
  Transmission Date: 20230417
  Serious: Yes (Life-Threatening, Hospitalization, Other)
  Sender: FDA-Public Use
  Company Number: US-drreddys-SPO/USA/23/0161853

PATIENT
  Sex: Female

DRUGS (1)
  1. FENTANYL CITRATE [Suspect]
     Active Substance: FENTANYL CITRATE
     Indication: Product used for unknown indication
     Route: 045

REACTIONS (13)
  - Right ventricular dysfunction [Recovered/Resolved]
  - Endocarditis bacterial [Unknown]
  - Endocarditis staphylococcal [Recovered/Resolved]
  - Prosthetic valve endocarditis [Recovered/Resolved]
  - Tricuspid valve incompetence [Recovered/Resolved]
  - Endocarditis [Recovered/Resolved]
  - Drug abuser [Recovered/Resolved]
  - Drug abuse [Recovered/Resolved]
  - Overdose [Recovered/Resolved]
  - Drug use disorder [Recovered/Resolved]
  - Cardiac failure [Unknown]
  - Septic pulmonary embolism [Unknown]
  - Chronic hepatitis C [Unknown]
